FAERS Safety Report 23023741 (Version 1)
Quarter: 2023Q4

REPORT INFORMATION
  Report Type: Report from Study
  Country: CO (occurrence: CO)
  Receive Date: 20231003
  Receipt Date: 20231003
  Transmission Date: 20240110
  Serious: Yes (Other)
  Sender: FDA-Public Use
  Company Number: CO-ABBVIE-5431445

PATIENT
  Sex: Female
  Weight: 65 kg

DRUGS (2)
  1. HUMIRA [Suspect]
     Active Substance: ADALIMUMAB
     Indication: Rheumatoid arthritis
     Dosage: HUMIRA AC, FORM STRENGTH: 40 MILLIGRAM
     Route: 058
  2. HUMIRA [Suspect]
     Active Substance: ADALIMUMAB

REACTIONS (16)
  - Vision blurred [Not Recovered/Not Resolved]
  - Head injury [Recovered/Resolved]
  - Pain in extremity [Not Recovered/Not Resolved]
  - Cough [Not Recovered/Not Resolved]
  - Peripheral swelling [Unknown]
  - Hypertension [Unknown]
  - Osteoarthritis [Unknown]
  - Fall [Recovered/Resolved]
  - Abdominal discomfort [Recovered/Resolved]
  - Head injury [Recovered/Resolved]
  - Vertigo [Unknown]
  - Urinary incontinence [Not Recovered/Not Resolved]
  - Renal disorder [Unknown]
  - Fall [Recovered/Resolved]
  - Gait inability [Recovered/Resolved]
  - Gait disturbance [Not Recovered/Not Resolved]

NARRATIVE: CASE EVENT DATE: 20130101
